FAERS Safety Report 14867523 (Version 4)
Quarter: 2018Q2

REPORT INFORMATION
  Report Type: Spontaneous
  Country: US (occurrence: US)
  Receive Date: 20180508
  Receipt Date: 20180625
  Transmission Date: 20180711
  Serious: No
  Sender: FDA-Public Use
  Company Number: PHEH2018US016082

PATIENT
  Sex: Male

DRUGS (1)
  1. EXTAVIA [Suspect]
     Active Substance: INTERFERON BETA-1B
     Indication: PRODUCT USED FOR UNKNOWN INDICATION
     Dosage: UNK, INJECTABLE 0.3 G, AMPULES/ VIALS OTHER
     Route: 065

REACTIONS (3)
  - Device leakage [Unknown]
  - Underdose [Unknown]
  - Device issue [Unknown]
